FAERS Safety Report 12991626 (Version 3)
Quarter: 2017Q1

REPORT INFORMATION
  Report Type: Report from Study
  Country: CA (occurrence: CA)
  Receive Date: 20161201
  Receipt Date: 20170119
  Transmission Date: 20170428
  Serious: Yes (Hospitalization)
  Sender: FDA-Public Use
  Company Number: CA-ROCHE-1856835

PATIENT
  Age: 60 Year
  Sex: Female
  Weight: 46 kg

DRUGS (33)
  1. ENOXAPARIN [Concomitant]
     Active Substance: ENOXAPARIN
     Indication: DEEP VEIN THROMBOSIS
     Route: 058
     Dates: start: 20161120, end: 20161121
  2. METHYLPREDNISOLONE. [Concomitant]
     Active Substance: METHYLPREDNISOLONE
     Indication: CONSTIPATION
     Dosage: METHYLPREDINISOLONE NA SUCCINATE
     Route: 042
     Dates: start: 20161118, end: 20161128
  3. ATIVAN [Concomitant]
     Active Substance: LORAZEPAM
     Indication: TACHYPNOEA
     Route: 042
     Dates: start: 20161118
  4. SOLU-MEDROL [Concomitant]
     Active Substance: METHYLPREDNISOLONE SODIUM SUCCINATE
     Indication: INFLAMMATION
     Route: 042
     Dates: start: 20161124
  5. LORAZEPAM. [Concomitant]
     Active Substance: LORAZEPAM
     Route: 042
     Dates: start: 20161118
  6. NACL 0.9% BOLUS [Concomitant]
     Route: 042
     Dates: start: 20161116, end: 20161116
  7. MAGNESIUM SULPHATE [Concomitant]
     Active Substance: MAGNESIUM SULFATE
     Route: 042
     Dates: start: 20161120
  8. LACTULOSE. [Concomitant]
     Active Substance: LACTULOSE
     Indication: CONSTIPATION
     Route: 048
     Dates: start: 20161129, end: 20161130
  9. STATEX (CANADA) [Concomitant]
     Active Substance: MORPHINE SULFATE
     Indication: COUGH
     Route: 048
     Dates: start: 20161103
  10. SODIUM PHOSPHATE [Concomitant]
     Active Substance: SODIUM PHOSPHATE
     Indication: CONSTIPATION
     Route: 042
     Dates: start: 20161120
  11. ACETAMINOPHEN. [Concomitant]
     Active Substance: ACETAMINOPHEN
     Indication: PYREXIA
     Route: 048
     Dates: start: 20161111
  12. HUMULIN R [Concomitant]
     Active Substance: INSULIN HUMAN
     Route: 058
     Dates: start: 20161118
  13. DALTEPARIN [Concomitant]
     Active Substance: DALTEPARIN
     Indication: THROMBOSIS PROPHYLAXIS
     Route: 058
     Dates: start: 20161121, end: 20161202
  14. BENYLIN DM (CANADA) [Concomitant]
     Indication: COUGH
     Route: 048
     Dates: start: 20161024
  15. PANTOPRAZOLE [Concomitant]
     Active Substance: PANTOPRAZOLE SODIUM
     Route: 042
     Dates: start: 20161118
  16. CIPROFLOXACIN. [Concomitant]
     Active Substance: CIPROFLOXACIN
     Indication: URINARY TRACT INFECTION
     Route: 048
     Dates: start: 20161120
  17. NACL 0.9% BOLUS [Concomitant]
     Route: 042
     Dates: start: 20161117
  18. TYLENOL [Concomitant]
     Active Substance: ACETAMINOPHEN
     Indication: PYREXIA
     Route: 054
     Dates: start: 20161116
  19. DIMENHYDRINATE. [Concomitant]
     Active Substance: DIMENHYDRINATE
     Indication: NAUSEA
     Route: 042
     Dates: start: 20161122, end: 20161122
  20. COBIMETINIB [Suspect]
     Active Substance: COBIMETINIB
     Indication: COLORECTAL ADENOCARCINOMA
     Dosage: THE MOST RECENT DOSE OF COBIMETINIB 60 MG PRIOR TO THE EVENT ONSET WAS ON 16/NOV/2016
     Route: 048
     Dates: start: 20161101
  21. ERYPAK [Concomitant]
     Indication: DERMATITIS ACNEIFORM
     Dosage: 0.6
     Route: 061
     Dates: start: 20160909
  22. SENOKOT [Concomitant]
     Active Substance: SENNOSIDES
     Indication: CONSTIPATION
     Route: 048
     Dates: start: 20161115
  23. LORAZEPAM. [Concomitant]
     Active Substance: LORAZEPAM
     Route: 042
     Dates: start: 20161117
  24. PIPERACILLIN/TAZOBACTAM [Concomitant]
     Active Substance: PIPERACILLIN SODIUM\TAZOBACTAM SODIUM
     Route: 042
     Dates: start: 20161117
  25. LOVENOX [Concomitant]
     Active Substance: ENOXAPARIN SODIUM
     Indication: THROMBOSIS PROPHYLAXIS
     Route: 058
     Dates: start: 20161116
  26. ATEZOLIZUMAB [Suspect]
     Active Substance: ATEZOLIZUMAB
     Indication: COLORECTAL ADENOCARCINOMA
     Dosage: THE MOST RECENT DOSE OF ATEZOLIZUMAB 840 MG PRIOR TO THE EVENT ONSET WAS ON 15/NOV/2016 AT 12:03
     Route: 042
     Dates: start: 20161101
  27. LAX-A-DAY [Concomitant]
     Indication: CONSTIPATION
     Route: 048
     Dates: start: 20161115, end: 20161128
  28. POTASSIUM CHLORIDE. [Concomitant]
     Active Substance: POTASSIUM CHLORIDE
     Indication: HYPOKALAEMIA
     Route: 042
     Dates: start: 20161120
  29. CHOLECALCIFEROL [Concomitant]
     Active Substance: CHOLECALCIFEROL
     Route: 048
     Dates: start: 20150916
  30. METROCREAM [Concomitant]
     Active Substance: METRONIDAZOLE
     Indication: DERMATITIS ACNEIFORM
     Dosage: 29.4
     Route: 061
     Dates: start: 20160909
  31. ACETAMINOPHEN. [Concomitant]
     Active Substance: ACETAMINOPHEN
     Indication: HEADACHE
     Route: 048
     Dates: start: 20161030, end: 20161031
  32. ACETAMINOPHEN. [Concomitant]
     Active Substance: ACETAMINOPHEN
     Indication: PYREXIA
     Route: 054
     Dates: start: 20161117
  33. PREDNISONE. [Concomitant]
     Active Substance: PREDNISONE
     Indication: INFLAMMATION
     Route: 048
     Dates: start: 20161120

REACTIONS (1)
  - Noninfective encephalitis [Recovering/Resolving]

NARRATIVE: CASE EVENT DATE: 20161116
